FAERS Safety Report 5640827-1 (Version None)
Quarter: 2008Q1

REPORT INFORMATION
  Report Type: 
  Country: None (occurrence: None)
  Receive Date: 20080225
  Receipt Date: 20080214
  Transmission Date: 20080703
  Serious: Yes (Death, Life-Threatening, Disabling)
  Sender: FDA-Public Use
  Company Number: A0710781A

PATIENT

DRUGS (2)
  1. ADVAIR MULTI DOSE                      (FLUTICASONE+SALMETEROL) [Suspect]
     Indication: DRUG USE FOR UNKNOWN INDICATION
     Dosage: INHALED
     Route: 055
  2. PROMETHAZINE [Concomitant]

REACTIONS (1)
  - DEATH [None]
